FAERS Safety Report 4863009-X (Version None)
Quarter: 2005Q4

REPORT INFORMATION
  Report Type: 
  Country: None (occurrence: None)
  Receive Date: 20051221
  Receipt Date: 20051214
  Transmission Date: 20060501
  Serious: Yes (Hospitalization)
  Sender: FDA-Public Use
  Company Number: NL-MERCK-0512NLD00015

PATIENT
  Age: 58 Year
  Sex: Female

DRUGS (4)
  1. ZOCOR [Suspect]
     Indication: ACUTE MYOCARDIAL INFARCTION
     Route: 048
     Dates: start: 19990601, end: 20030201
  2. ZOCOR [Suspect]
     Route: 048
     Dates: start: 20030201
  3. ATENOLOL [Concomitant]
     Route: 048
     Dates: start: 19990527
  4. ASPIRIN [Concomitant]
     Route: 048
     Dates: start: 19990527

REACTIONS (4)
  - DYSPHAGIA [None]
  - PHARYNGITIS [None]
  - PYREXIA [None]
  - SLEEP DISORDER [None]
